FAERS Safety Report 23154888 (Version 1)
Quarter: 2023Q4

REPORT INFORMATION
  Report Type: Spontaneous
  Country: US (occurrence: US)
  Receive Date: 20231107
  Receipt Date: 20231107
  Transmission Date: 20240109
  Serious: Yes (Hospitalization)
  Sender: FDA-Public Use
  Company Number: US-TEVA-2023-US-2942219

PATIENT
  Age: 80 Year
  Sex: Male

DRUGS (11)
  1. RISPERIDONE [Suspect]
     Active Substance: RISPERIDONE
     Indication: Psychotic disorder
     Dosage: 0.25 MG
     Route: 065
  2. QUETIAPINE [Suspect]
     Active Substance: QUETIAPINE
     Indication: Psychotic disorder
     Dosage: 12.5 MILLIGRAM DAILY; AT BEDTIME
     Route: 065
  3. TEMAZEPAM [Concomitant]
     Active Substance: TEMAZEPAM
     Indication: Nightmare
     Dosage: 7.5 MG
     Route: 065
  4. PRAZOSIN [Concomitant]
     Active Substance: PRAZOSIN
     Indication: Nightmare
     Dosage: 1 MG
     Route: 065
  5. MELATONIN [Concomitant]
     Active Substance: MELATONIN
     Indication: Nightmare
     Dosage: 3 MG
     Route: 065
  6. MELATONIN [Concomitant]
     Active Substance: MELATONIN
     Indication: Depressive symptom
  7. MELATONIN [Concomitant]
     Active Substance: MELATONIN
     Indication: Night sweats
  8. SERTRALINE [Concomitant]
     Active Substance: SERTRALINE HYDROCHLORIDE
     Indication: Nightmare
     Dosage: 25 MILLIGRAM DAILY; IN THE MORNING
     Route: 065
  9. SERTRALINE [Concomitant]
     Active Substance: SERTRALINE HYDROCHLORIDE
     Indication: Depressive symptom
  10. SERTRALINE [Concomitant]
     Active Substance: SERTRALINE HYDROCHLORIDE
     Indication: Night sweats
  11. CLONAZEPAM [Concomitant]
     Active Substance: CLONAZEPAM
     Indication: Rapid eye movement sleep behaviour disorder
     Dosage: 0.5 MG
     Route: 065

REACTIONS (8)
  - Anxiety [Unknown]
  - Aggression [Unknown]
  - Sedation complication [Recovered/Resolved]
  - Screaming [Recovered/Resolved]
  - Incoherent [Recovered/Resolved]
  - Loss of personal independence in daily activities [Recovered/Resolved]
  - Paradoxical drug reaction [Recovered/Resolved]
  - Drug ineffective [Unknown]
